FAERS Safety Report 5499067-1 (Version None)
Quarter: 2007Q4

REPORT INFORMATION
  Report Type: 
  Country: None (occurrence: None)
  Receive Date: 20071026
  Receipt Date: 20070605
  Transmission Date: 20080405
  Serious: No
  Sender: FDA-Public Use
  Company Number: A0652987A

PATIENT
  Sex: Female

DRUGS (2)
  1. ADVAIR DISKUS 100/50 [Suspect]
     Indication: ASTHMA
     Route: 055
     Dates: start: 20000101
  2. NO CONCURRENT MEDICATIONS [Concomitant]

REACTIONS (4)
  - COLLAPSE OF LUNG [None]
  - LUNG DISORDER [None]
  - MEDICATION ERROR [None]
  - PULMONARY MASS [None]
